FAERS Safety Report 13504262 (Version 1)
Quarter: 2017Q2

REPORT INFORMATION
  Report Type: Spontaneous
  Country: US (occurrence: US)
  Receive Date: 20170502
  Receipt Date: 20170502
  Transmission Date: 20170830
  Serious: Yes (Other)
  Sender: FDA-Public Use
  Company Number: US-PFIZER INC-2017184678

PATIENT
  Age: 76 Year
  Sex: Male

DRUGS (13)
  1. ASPIRIN. [Suspect]
     Active Substance: ASPIRIN
     Dosage: 1 DF, DAILY
  2. LAMICTAL [Suspect]
     Active Substance: LAMOTRIGINE
     Dosage: 200 MG, 2X/DAY
  3. PROTONIX [Suspect]
     Active Substance: PANTOPRAZOLE SODIUM
     Dosage: 40 MG, DAILY
  4. VITAMIN D3 [Suspect]
     Active Substance: CHOLECALCIFEROL
     Dosage: 2000 IU, DAILY
     Route: 048
  5. BIDIL [Suspect]
     Active Substance: HYDRALAZINE HYDROCHLORIDE\ISOSORBIDE DINITRATE
     Dosage: 1 DF, 3X/DAY (HYDRALAZINE HYDROCHLORIDE: 37.5, ISOSORBIDE DINITRATE: 20 MG)
     Route: 048
  6. NOVOLOG [Suspect]
     Active Substance: INSULIN ASPART
     Dosage: UNK (SLIDING SCALE)
  7. KEPPRA [Suspect]
     Active Substance: LEVETIRACETAM
     Dosage: 750 MG, 2X/DAY
     Route: 048
  8. CARVEDILOL. [Suspect]
     Active Substance: CARVEDILOL
     Dosage: 2 TABLETS IN THE MORNING AND 1 TABLET AT NIGHTTIME, DAILY
  9. LANTUS [Suspect]
     Active Substance: INSULIN GLARGINE
     Dosage: 60 IU, DAILY
  10. DIGOXIN. [Suspect]
     Active Substance: DIGOXIN
     Dosage: 0.125 MG, EVERY OTHER DAY
     Route: 048
  11. FUROSEMIDE. [Suspect]
     Active Substance: FUROSEMIDE
     Dosage: 40 MG, DAILY
     Route: 048
  12. FLOMAX [Suspect]
     Active Substance: TAMSULOSIN HYDROCHLORIDE
     Dosage: 1 DF, 1X/DAY (AT BEDTIME)
     Route: 048
  13. FISH OIL OMEGA 3 [Suspect]
     Active Substance: FISH OIL
     Dosage: 1200 MG, DAILY

REACTIONS (18)
  - Hyperlipidaemia [Unknown]
  - Angiopathy [Unknown]
  - Diabetes mellitus [Unknown]
  - Pericardial effusion [Unknown]
  - Obesity [Unknown]
  - Cardiomyopathy [Unknown]
  - Palpitations [Unknown]
  - Dyspnoea [Unknown]
  - Neck pain [Unknown]
  - Fatigue [Unknown]
  - Pain in extremity [Unknown]
  - Atrial fibrillation [Unknown]
  - Diabetic nephropathy [Unknown]
  - Atrial flutter [Unknown]
  - Essential hypertension [Unknown]
  - Hypertension [Unknown]
  - Hypoaesthesia [Unknown]
  - Sleep apnoea syndrome [Unknown]
